FAERS Safety Report 23280903 (Version 1)
Quarter: 2023Q4

REPORT INFORMATION
  Report Type: Spontaneous
  Country: US (occurrence: US)
  Receive Date: 20231211
  Receipt Date: 20231211
  Transmission Date: 20240110
  Serious: No
  Sender: FDA-Public Use
  Company Number: US-NOVEN PHARMACEUTICALS, INC.-2023-NOV-US000243

PATIENT
  Age: 61 Year
  Sex: Female
  Weight: 73.469 kg

DRUGS (6)
  1. ESTRADIOL [Suspect]
     Active Substance: ESTRADIOL
     Indication: Menopausal symptoms
     Dosage: 0.5 MG,  EVERY 3-4 DAYS
     Route: 062
  2. ESTRADIOL [Suspect]
     Active Substance: ESTRADIOL
     Dosage: 0.5 MG,  EVERY 3-4 DAYS
     Route: 062
  3. VAGIFEM [Concomitant]
     Active Substance: ESTRADIOL
     Indication: Product used for unknown indication
     Dosage: UNKNOWN, EVERY 2 WEEKS
     Route: 065
  4. PROGESTERONE [Concomitant]
     Active Substance: PROGESTERONE
     Indication: Product used for unknown indication
     Dosage: UNKNOWN. DAILY
     Route: 061
  5. ATORVASTATIN [Concomitant]
     Active Substance: ATORVASTATIN
     Indication: Blood cholesterol increased
     Dosage: UNKNOWN
     Route: 048
  6. ZETIA [Concomitant]
     Active Substance: EZETIMIBE
     Indication: Blood cholesterol increased
     Dosage: UNKNOWN
     Route: 065

REACTIONS (5)
  - Product administration error [Recovered/Resolved]
  - Device difficult to use [Recovered/Resolved]
  - Device breakage [Recovered/Resolved]
  - Device physical property issue [Not Recovered/Not Resolved]
  - No adverse event [Unknown]

NARRATIVE: CASE EVENT DATE: 20230101
